FAERS Safety Report 7989833-2 (Version None)
Quarter: 2011Q4

REPORT INFORMATION
  Report Type: 
  Country: None (occurrence: None)
  Receive Date: 20111219
  Receipt Date: 20101217
  Transmission Date: 20120403
  Serious: No
  Sender: FDA-Public Use
  Company Number: US-ASTRAZENECA-2010SE52321

PATIENT
  Age: 764 Month
  Sex: Female
  Weight: 86.2 kg

DRUGS (3)
  1. CRESTOR [Suspect]
     Indication: HYPERCHOLESTEROLAEMIA
     Route: 048
     Dates: start: 20080101
  2. CRESTOR [Suspect]
     Route: 048
  3. NORVASC [Concomitant]
     Indication: HYPERTENSION

REACTIONS (7)
  - INCORRECT DOSE ADMINISTERED [None]
  - DRUG DOSE OMISSION [None]
  - BONE PAIN [None]
  - PAIN IN EXTREMITY [None]
  - BACK PAIN [None]
  - MYALGIA [None]
  - BLOOD CHOLESTEROL INCREASED [None]
